FAERS Safety Report 8260663-X (Version None)
Quarter: 2012Q2

REPORT INFORMATION
  Report Type: 
  Country: None (occurrence: None)
  Receive Date: 20120405
  Receipt Date: 20120323
  Transmission Date: 20120825
  Serious: Yes (Other)
  Sender: FDA-Public Use
  Company Number: AR-AMGEN-ARGSP2012015581

PATIENT
  Age: 71 Year
  Sex: Female

DRUGS (4)
  1. OMEPRAZOLE [Concomitant]
     Dosage: UNK
  2. ENBREL [Suspect]
     Indication: RHEUMATOID ARTHRITIS
     Dosage: 50 MG, WEEKLY
     Route: 058
     Dates: start: 20100802
  3. CELEBREX [Concomitant]
     Dosage: UNK
  4. METICORTEN [Concomitant]
     Dosage: UNK

REACTIONS (3)
  - EYE DISORDER [None]
  - PHARYNGITIS [None]
  - ULCERATIVE KERATITIS [None]
